FAERS Safety Report 6052808-7 (Version None)
Quarter: 2009Q1

REPORT INFORMATION
  Report Type: 
  Country: None (occurrence: None)
  Receive Date: 20090122
  Receipt Date: 20090107
  Transmission Date: 20090719
  Serious: Yes (Death)
  Sender: FDA-Public Use
  Company Number: 2009SP000157

PATIENT
  Age: 58 Year
  Sex: Male

DRUGS (4)
  1. LUNESTA [Suspect]
     Dosage: ORFAL
     Route: 048
  2. CLONAZEPAM [Suspect]
  3. ZOLPIDEM [Suspect]
  4. LITHIUM CARBONATE [Suspect]

REACTIONS (2)
  - CARDIO-RESPIRATORY ARREST [None]
  - COMPLETED SUICIDE [None]
